FAERS Safety Report 9227504 (Version 1)
Quarter: 2013Q1

REPORT INFORMATION
  Report Type: Spontaneous
  Country: US (occurrence: None)
  Receive Date: 20121004
  Receipt Date: 20121004
  Transmission Date: 20140127
  Serious: Yes (Other)
  Sender: FDA-Public Use
  Company Number: PHEH2012US013560

PATIENT
  Age: 54 Year
  Sex: Female

DRUGS (1)
  1. COMBIPATCH(ESTRADIOL, NORETHISTERONE ACETATE) MATRIX TRANS THERAPEUTIC SYST. [Suspect]

REACTIONS (1)
  - Metrorrhagia [None]
